FAERS Safety Report 5562628-5 (Version None)
Quarter: 2007Q4

REPORT INFORMATION
  Report Type: 
  Country: None (occurrence: None)
  Receive Date: 20071211
  Receipt Date: 20071211
  Transmission Date: 20080405
  Serious: Yes (Life-Threatening, Hospitalization, Other)
  Sender: FDA-Public Use
  Company Number: None

PATIENT
  Age: 44 Year
  Sex: Female
  Weight: 95.2554 kg

DRUGS (2)
  1. LEXAPRO [Suspect]
     Indication: DEPRESSION
     Dosage: 60 MG ALL AT ONCE, AM PO
     Route: 048
     Dates: start: 20040101, end: 20070101
  2. WELLBUTRIN [Suspect]
     Indication: DEPRESSION
     Dosage: 450 MG ALL AT ONCE, AM PO
     Route: 048
     Dates: start: 20060101, end: 20070101

REACTIONS (14)
  - ABNORMAL BEHAVIOUR [None]
  - AMNESIA [None]
  - CONTUSION [None]
  - CONVULSION [None]
  - DRUG ABUSE [None]
  - HALLUCINATIONS, MIXED [None]
  - HEAD INJURY [None]
  - IMPRISONMENT [None]
  - POISONING [None]
  - PSYCHOTIC DISORDER [None]
  - SCREAMING [None]
  - SWELLING FACE [None]
  - THINKING ABNORMAL [None]
  - TOOTHACHE [None]
